FAERS Safety Report 7473914-6 (Version None)
Quarter: 2011Q2

REPORT INFORMATION
  Report Type: 
  Country: None (occurrence: None)
  Receive Date: 20110511
  Receipt Date: 20110510
  Transmission Date: 20111010
  Serious: Yes (Hospitalization, Other)
  Sender: FDA-Public Use
  Company Number: AU-PFIZER INC-2011099234

PATIENT
  Age: 46 Year
  Sex: Male

DRUGS (1)
  1. GABAPENTIN [Suspect]
     Dosage: UNK MG, 2X/DAY

REACTIONS (4)
  - DYSPNOEA [None]
  - THROAT TIGHTNESS [None]
  - CHEST PAIN [None]
  - DYSARTHRIA [None]
